FAERS Safety Report 11620804 (Version 2)
Quarter: 2015Q4

REPORT INFORMATION
  Report Type: Spontaneous
  Country: BR (occurrence: BR)
  Receive Date: 20151012
  Receipt Date: 20151022
  Transmission Date: 20160304
  Serious: Yes (Other)
  Sender: FDA-Public Use
  Company Number: BR-GLAXOSMITHKLINE-BR2015GSK144790

PATIENT
  Age: 3 Year
  Sex: Female

DRUGS (2)
  1. ZINNAT [Suspect]
     Active Substance: CEFUROXIME AXETIL
     Indication: PRODUCT USED FOR UNKNOWN INDICATION
     Dosage: 5 ML, BID, (50ML/250MG)
  2. ZINNAT [Suspect]
     Active Substance: CEFUROXIME AXETIL
     Dosage: UNK,(70ML/250MG)

REACTIONS (5)
  - Pneumonia [Unknown]
  - Product taste abnormal [Unknown]
  - Vomiting [Unknown]
  - Disease recurrence [Unknown]
  - Product quality issue [Unknown]
